FAERS Safety Report 7238980-1 (Version None)
Quarter: 2011Q1

REPORT INFORMATION
  Report Type: 
  Country: None (occurrence: None)
  Receive Date: 20110119
  Receipt Date: 20110119
  Transmission Date: 20110831
  Serious: Yes (Hospitalization)
  Sender: FDA-Public Use
  Company Number: None

PATIENT
  Age: 65 Year
  Sex: Male
  Weight: 113.5 kg

DRUGS (1)
  1. NAPROXEN [Suspect]
     Indication: UPPER GASTROINTESTINAL HAEMORRHAGE
     Dosage: 500 MG BID PO
     Route: 048
     Dates: start: 20100606, end: 20100920

REACTIONS (3)
  - UPPER GASTROINTESTINAL HAEMORRHAGE [None]
  - TREATMENT NONCOMPLIANCE [None]
  - ANAEMIA [None]
